FAERS Safety Report 18601231 (Version 1)
Quarter: 2020Q4

REPORT INFORMATION
  Report Type: Spontaneous
  Country: US (occurrence: US)
  Receive Date: 20201210
  Receipt Date: 20201210
  Transmission Date: 20210114
  Serious: No
  Sender: FDA-Public Use
  Company Number: US-AMERICAN REGENT INC-2020001326

PATIENT

DRUGS (1)
  1. VENOFER [Suspect]
     Active Substance: IRON SUCROSE
     Indication: IRON DEFICIENCY ANAEMIA
     Dosage: UNK UNK, SINGLE
     Route: 042
     Dates: start: 20200618, end: 20200618

REACTIONS (4)
  - Injection site pain [Not Recovered/Not Resolved]
  - Vascular pain [Unknown]
  - Peripheral swelling [Recovered/Resolved]
  - Back pain [Recovered/Resolved]

NARRATIVE: CASE EVENT DATE: 20200618
